FAERS Safety Report 5991402-0 (Version None)
Quarter: 2008Q4

REPORT INFORMATION
  Report Type: 
  Country: None (occurrence: None)
  Receive Date: 20081202
  Receipt Date: 20080922
  Transmission Date: 20090506
  Serious: Yes (Other)
  Sender: FDA-Public Use
  Company Number: WAES 0809USA03908

PATIENT
  Age: 75 Year
  Sex: Female

DRUGS (3)
  1. FOSAMAX [Suspect]
     Indication: BONE DENSITY DECREASED
     Dosage: 10 MG/DAILY/PO ; 70 MG/WKY/PO
     Route: 048
     Dates: end: 20080701
  2. FOSAMAX [Suspect]
     Indication: BONE DENSITY DECREASED
     Dosage: 10 MG/DAILY/PO ; 70 MG/WKY/PO
     Route: 048
     Dates: start: 19980701
  3. ATENOLOL [Concomitant]

REACTIONS (1)
  - OSTEONECROSIS [None]
